FAERS Safety Report 10982977 (Version 1)
Quarter: 2015Q2

REPORT INFORMATION
  Report Type: Report from Study
  Country: FR (occurrence: FR)
  Receive Date: 20150403
  Receipt Date: 20150403
  Transmission Date: 20150821
  Serious: Yes (Hospitalization, Other)
  Sender: FDA-Public Use
  Company Number: FR-ROCHE-1164758

PATIENT
  Age: 57 Year
  Sex: Female

DRUGS (13)
  1. OROCAL (FRANCE) [Concomitant]
  2. RITUXIMAB [Suspect]
     Active Substance: RITUXIMAB
     Route: 041
     Dates: start: 20090402, end: 20090402
  3. OROCAL (FRANCE) [Concomitant]
  4. UVEDOSE [Concomitant]
     Active Substance: CHOLECALCIFEROL
  5. INIPOMP [Concomitant]
     Active Substance: PANTOPRAZOLE SODIUM
  6. ACETAMINOPHEN AND CODEINE [Concomitant]
     Active Substance: ACETAMINOPHEN\CODEINE PHOSPHATE
  7. CELEBREX [Concomitant]
     Active Substance: CELECOXIB
  8. FOSAMAX [Concomitant]
     Active Substance: ALENDRONATE SODIUM
  9. UVEDOSE [Concomitant]
     Active Substance: CHOLECALCIFEROL
  10. RITUXIMAB [Suspect]
     Active Substance: RITUXIMAB
     Indication: RHEUMATOID ARTHRITIS
     Route: 041
     Dates: start: 20090319, end: 20090319
  11. SPECIAFOLDINE [Concomitant]
     Active Substance: FOLIC ACID
  12. DITROPAN [Concomitant]
     Active Substance: OXYBUTYNIN CHLORIDE
  13. SEROPLEX [Concomitant]
     Active Substance: ESCITALOPRAM OXALATE

REACTIONS (7)
  - Hypoxia [Unknown]
  - Pneumonia [Unknown]
  - Anaemia [Unknown]
  - Genitourinary tract infection [Recovered/Resolved]
  - Urinary tract infection bacterial [Recovered/Resolved]
  - Cystitis [Unknown]
  - Escherichia urinary tract infection [Unknown]

NARRATIVE: CASE EVENT DATE: 20090420
